FAERS Safety Report 5366601-1 (Version None)
Quarter: 2007Q2

REPORT INFORMATION
  Report Type: 
  Country: None (occurrence: None)
  Receive Date: 20070622
  Receipt Date: 20070611
  Transmission Date: 20071010
  Serious: Yes (Other)
  Sender: FDA-Public Use
  Company Number: US-PFIZER INC-2007040151

PATIENT
  Sex: Female
  Weight: 87.1 kg

DRUGS (6)
  1. VARENICLINE [Suspect]
     Indication: EX-SMOKER
  2. ADVAIR DISKUS 100/50 [Concomitant]
  3. TRIAMTERENE [Concomitant]
     Indication: HYPERTENSION
  4. PAROXETINE [Concomitant]
  5. CALCIUM CHLORIDE [Concomitant]
     Route: 048
  6. VITAMIN CAP [Concomitant]

REACTIONS (3)
  - ABDOMINAL PAIN UPPER [None]
  - ACTIVITIES OF DAILY LIVING IMPAIRED [None]
  - NAUSEA [None]
